FAERS Safety Report 5633832-2 (Version None)
Quarter: 2008Q1

REPORT INFORMATION
  Report Type: 
  Country: None (occurrence: None)
  Receive Date: 20080131
  Receipt Date: 20070626
  Transmission Date: 20080703
  Serious: Yes (Other)
  Sender: FDA-Public Use
  Company Number: 154039USA

PATIENT
  Age: 42 Year
  Sex: Female
  Weight: 96.1626 kg

DRUGS (1)
  1. COPAXONE [Suspect]
     Indication: MULTIPLE SCLEROSIS
     Dosage: (20 MG),SUBCUTANEOUS
     Route: 058
     Dates: start: 20070102, end: 20070122

REACTIONS (1)
  - HEPATIC ENZYME INCREASED [None]
